FAERS Safety Report 15335806 (Version 2)
Quarter: 2018Q3

REPORT INFORMATION
  Report Type: Report from Study
  Country: DE (occurrence: DE)
  Receive Date: 20180830
  Receipt Date: 20180920
  Transmission Date: 20181010
  Serious: Yes (Hospitalization, Other)
  Sender: FDA-Public Use
  Company Number: DE-TEVA-2018-DE-948849

PATIENT
  Age: 68 Year
  Sex: Female
  Weight: 49 kg

DRUGS (107)
  1. FOLINIC ACID [Suspect]
     Active Substance: LEUCOVORIN
     Indication: ADENOCARCINOMA GASTRIC
     Route: 042
     Dates: start: 20170530, end: 20170530
  2. FOLINIC ACID [Suspect]
     Active Substance: LEUCOVORIN
     Dosage: 636 UNK
     Dates: start: 20171101, end: 20171101
  3. FOLINIC ACID [Suspect]
     Active Substance: LEUCOVORIN
     Dosage: 636 MG, UNK
     Dates: start: 20171017, end: 20171017
  4. FOLINIC ACID [Suspect]
     Active Substance: LEUCOVORIN
     Dosage: 636 UNK
     Dates: start: 20180208, end: 20180208
  5. FOLINIC ACID [Suspect]
     Active Substance: LEUCOVORIN
     Dosage: 636 MG, UNK
     Dates: start: 20170822, end: 20170822
  6. FOLINIC ACID [Suspect]
     Active Substance: LEUCOVORIN
     Dosage: 636 MG, UNK
     Dates: start: 20180405, end: 20180405
  7. FLUOROURACIL. [Suspect]
     Active Substance: FLUOROURACIL
     Dosage: 3816 UNK
     Dates: start: 20171017, end: 20171019
  8. FLUOROURACIL. [Suspect]
     Active Substance: FLUOROURACIL
     Dosage: 3816 UNK
     Dates: start: 20180308, end: 20180310
  9. FLUOROURACIL. [Suspect]
     Active Substance: FLUOROURACIL
     Dosage: 636 UNK
     Dates: start: 20171101, end: 20171101
  10. FLUOROURACIL. [Suspect]
     Active Substance: FLUOROURACIL
     Dosage: 636 UNK
     Dates: start: 20170919, end: 20170919
  11. FLUOROURACIL. [Suspect]
     Active Substance: FLUOROURACIL
     Dosage: 636 UNK
     Dates: start: 20170511, end: 20170511
  12. CENTRUM A TO ZINC [Concomitant]
     Dosage: UNK
     Route: 065
     Dates: start: 20180105
  13. FENTANYL. [Concomitant]
     Active Substance: FENTANYL
     Dosage: UNK
     Route: 065
     Dates: start: 20170227
  14. ADDEL N [CHROMIC CHLORIDE;COPPER CHLORIDE DIHYDRATE;FERRIC CHLORIDE HE [Concomitant]
     Dosage: UNK
     Route: 065
     Dates: start: 20180406, end: 20180406
  15. FOLINIC ACID [Suspect]
     Active Substance: LEUCOVORIN
     Dosage: 636 UNK
     Dates: start: 20171128, end: 20171128
  16. FOLINIC ACID [Suspect]
     Active Substance: LEUCOVORIN
     Dosage: 636 UNK
     Dates: start: 20170627, end: 20170627
  17. FOLINIC ACID [Suspect]
     Active Substance: LEUCOVORIN
     Dosage: 636 UNK
     Dates: start: 20170413, end: 20170413
  18. FOLINIC ACID [Suspect]
     Active Substance: LEUCOVORIN
     Dosage: 636 UNK
     Dates: start: 20180125, end: 20180125
  19. FOLINIC ACID [Suspect]
     Active Substance: LEUCOVORIN
     Dosage: 636 UNK
     Dates: start: 20170511, end: 20170511
  20. FOLINIC ACID [Suspect]
     Active Substance: LEUCOVORIN
     Dosage: 636 MG
     Dates: start: 20171004, end: 20171004
  21. FOLINIC ACID [Suspect]
     Active Substance: LEUCOVORIN
     Dosage: 636 MG, UNK
     Dates: start: 20180222, end: 20180222
  22. NOVAMINSULFON INJEKT [Suspect]
     Active Substance: METAMIZOLE SODIUM
     Indication: ABDOMINAL PAIN UPPER
     Dosage: UNK UNK, UNK
     Route: 042
     Dates: start: 20180109
  23. FLUOROURACIL. [Suspect]
     Active Substance: FLUOROURACIL
     Dosage: 636 UNK
     Dates: start: 20170613, end: 20170613
  24. FLUOROURACIL. [Suspect]
     Active Substance: FLUOROURACIL
     Dosage: 3816 UNK
     Dates: start: 20171212, end: 20171214
  25. FLUOROURACIL. [Suspect]
     Active Substance: FLUOROURACIL
     Dosage: 636 UNK
     Dates: start: 20170822, end: 20170822
  26. FLUOROURACIL. [Suspect]
     Active Substance: FLUOROURACIL
     Dosage: 3816 UNK
     Dates: start: 20170302, end: 20170304
  27. FLUOROURACIL. [Suspect]
     Active Substance: FLUOROURACIL
     Dosage: 3816 UNK
     Dates: start: 20170808, end: 20170810
  28. FLUOROURACIL. [Suspect]
     Active Substance: FLUOROURACIL
     Dosage: 3816 UNK
     Dates: start: 20180125, end: 20180127
  29. FLUOROURACIL. [Suspect]
     Active Substance: FLUOROURACIL
     Dosage: 3816 UNK
     Dates: start: 20170413, end: 20170415
  30. PERFALGAN [Suspect]
     Active Substance: ACETAMINOPHEN
     Dosage: UNK UNK, UNK
     Route: 065
  31. ONDANSETRON [Concomitant]
     Active Substance: ONDANSETRON
     Dosage: UNK
     Route: 065
     Dates: start: 20170217
  32. PANTOPRAZOLE [Concomitant]
     Active Substance: PANTOPRAZOLE
     Dosage: UNK
     Route: 065
     Dates: start: 20170215
  33. XARELTO [Concomitant]
     Active Substance: RIVAROXABAN
     Dosage: UNK
     Route: 065
     Dates: start: 20170809
  34. FOLINIC ACID [Suspect]
     Active Substance: LEUCOVORIN
     Dosage: 636 MG, UNK
     Dates: start: 20171114, end: 20171114
  35. FOLINIC ACID [Suspect]
     Active Substance: LEUCOVORIN
     Dosage: 636 UNK
     Dates: start: 20170711, end: 20170711
  36. OXALIPLATIN. [Suspect]
     Active Substance: OXALIPLATIN
     Indication: ADENOCARCINOMA GASTRIC
     Route: 042
     Dates: start: 20170627, end: 20170627
  37. OXALIPLATIN. [Suspect]
     Active Substance: OXALIPLATIN
     Dosage: 135 MG, UNK
     Dates: start: 20170316, end: 20170316
  38. OXALIPLATIN. [Suspect]
     Active Substance: OXALIPLATIN
     Dosage: 135 MG, UNK
     Dates: start: 20170725, end: 20170725
  39. FLUOROURACIL. [Suspect]
     Active Substance: FLUOROURACIL
     Dosage: 3816 UNK
     Dates: start: 20170530, end: 20170601
  40. FLUOROURACIL. [Suspect]
     Active Substance: FLUOROURACIL
     Dosage: 636 UNK
     Dates: start: 20170808, end: 20170808
  41. CLEXANE [Suspect]
     Active Substance: ENOXAPARIN SODIUM
     Dosage: UNK UNK, UNK
     Route: 065
  42. RINGERS SOLUTION [Concomitant]
     Active Substance: CALCIUM CHLORIDE\POTASSIUM CHLORIDE\SODIUM CHLORIDE
     Dosage: UNK
     Route: 065
     Dates: start: 20180406, end: 20180406
  43. SYMBICORT [Concomitant]
     Active Substance: BUDESONIDE\FORMOTEROL FUMARATE DIHYDRATE
     Dosage: UNK
     Route: 065
     Dates: start: 20170511
  44. FOLINIC ACID [Suspect]
     Active Substance: LEUCOVORIN
     Dosage: 636 UNK
     Dates: start: 20170316, end: 20170316
  45. OXALIPLATIN. [Suspect]
     Active Substance: OXALIPLATIN
     Dosage: 135 UNK
     Dates: start: 20170711, end: 20170711
  46. OXALIPLATIN. [Suspect]
     Active Substance: OXALIPLATIN
     Dosage: 135 UNK
     Dates: start: 20170302, end: 20170302
  47. OXALIPLATIN. [Suspect]
     Active Substance: OXALIPLATIN
     Dosage: 135 MG, UNK
     Dates: start: 20170330, end: 20170330
  48. FLUOROURACIL. [Suspect]
     Active Substance: FLUOROURACIL
     Indication: ADENOCARCINOMA GASTRIC
     Dosage: 3816 UNK
     Route: 042
     Dates: start: 20180405, end: 20180407
  49. FLUOROURACIL. [Suspect]
     Active Substance: FLUOROURACIL
     Dosage: 3816 UNK
     Dates: start: 20170725, end: 20170727
  50. FLUOROURACIL. [Suspect]
     Active Substance: FLUOROURACIL
     Dosage: 3816 UNK
     Dates: start: 20171101, end: 20171103
  51. FLUOROURACIL. [Suspect]
     Active Substance: FLUOROURACIL
     Dosage: 3816 UNK
     Dates: start: 20171004, end: 20171006
  52. FLUOROURACIL. [Suspect]
     Active Substance: FLUOROURACIL
     Dosage: 636 UNK
     Dates: start: 20170316, end: 20170316
  53. FLUOROURACIL. [Suspect]
     Active Substance: FLUOROURACIL
     Dosage: 3816 UNK
     Dates: start: 20170427, end: 20170429
  54. FLUOROURACIL. [Suspect]
     Active Substance: FLUOROURACIL
     Dosage: 3816 UNK
     Dates: start: 20170822, end: 20170824
  55. CERNEVIT [ASCORBIC ACID;BIOTIN;COCARBOXYLASE TETRAHYDRATE;COLECALCIFER [Concomitant]
     Dosage: UNK
     Route: 065
     Dates: start: 20180406, end: 20180406
  56. FOLINIC ACID [Suspect]
     Active Substance: LEUCOVORIN
     Dosage: 636 UNK
     Dates: start: 20170919, end: 20170919
  57. OXALIPLATIN. [Suspect]
     Active Substance: OXALIPLATIN
     Dosage: 135 UNK
     Dates: start: 20170530, end: 20170530
  58. OXALIPLATIN. [Suspect]
     Active Substance: OXALIPLATIN
     Dosage: 135,UNK
     Dates: start: 20170413, end: 20170413
  59. DICLOFENAC [Suspect]
     Active Substance: DICLOFENAC
     Indication: PRODUCT USED FOR UNKNOWN INDICATION
     Dosage: UNK UNK, UNK
     Route: 065
     Dates: end: 20170424
  60. FLUOROURACIL. [Suspect]
     Active Substance: FLUOROURACIL
     Dosage: 636 UNK
     Dates: start: 20170627, end: 20170627
  61. FLUOROURACIL. [Suspect]
     Active Substance: FLUOROURACIL
     Dosage: 636 UNK
     Dates: start: 20171128, end: 20171128
  62. FLUOROURACIL. [Suspect]
     Active Substance: FLUOROURACIL
     Dosage: 3816 UNK
     Dates: start: 20171128, end: 20171130
  63. FLUOROURACIL. [Suspect]
     Active Substance: FLUOROURACIL
     Dosage: 636 UNK
     Dates: start: 20170302, end: 20170302
  64. FLUOROURACIL. [Suspect]
     Active Substance: FLUOROURACIL
     Dosage: 636 UNK
     Dates: start: 20170530, end: 20170530
  65. MOVICOL [Concomitant]
     Active Substance: POLYETHYLENE GLYCOL 3350\POTASSIUM CHLORIDE\SODIUM BICARBONATE\SODIUM CHLORIDE
     Dosage: UNK
     Route: 065
     Dates: start: 2007
  66. FOLINIC ACID [Suspect]
     Active Substance: LEUCOVORIN
     Dosage: 636 UNK
     Dates: start: 20170808, end: 20170808
  67. FOLINIC ACID [Suspect]
     Active Substance: LEUCOVORIN
     Dosage: 636 UNK
     Dates: start: 20170613, end: 20170613
  68. FOLINIC ACID [Suspect]
     Active Substance: LEUCOVORIN
     Dosage: 636 UNK
     Dates: start: 20170427, end: 20170427
  69. FOLINIC ACID [Suspect]
     Active Substance: LEUCOVORIN
     Dosage: 636 UNK
     Dates: start: 20171212, end: 20171212
  70. FLUOROURACIL. [Suspect]
     Active Substance: FLUOROURACIL
     Dosage: 636 UNK
     Dates: start: 20171004, end: 20171004
  71. FLUOROURACIL. [Suspect]
     Active Substance: FLUOROURACIL
     Dosage: 3816 UNK
     Dates: start: 20170330, end: 20170401
  72. FLUOROURACIL. [Suspect]
     Active Substance: FLUOROURACIL
     Dosage: 3816 MG, UNK
     Dates: start: 20180222, end: 20180224
  73. FLUOROURACIL. [Suspect]
     Active Substance: FLUOROURACIL
     Dosage: 3816 UNK
     Dates: start: 20170919, end: 20170921
  74. FLUOROURACIL. [Suspect]
     Active Substance: FLUOROURACIL
     Dosage: 636 UNK
     Dates: start: 20170427, end: 20170427
  75. FLUOROURACIL. [Suspect]
     Active Substance: FLUOROURACIL
     Dosage: 636 UNK
     Dates: start: 20170413, end: 20170413
  76. FLUOROURACIL. [Suspect]
     Active Substance: FLUOROURACIL
     Dosage: 3816 UNK
     Dates: start: 20170511, end: 20170513
  77. KREON [Concomitant]
     Active Substance: PANCRELIPASE
     Dosage: UNK
     Route: 065
     Dates: start: 20150603
  78. DUROGESIC SMAT [Concomitant]
     Active Substance: FENTANYL
     Dosage: UNK
     Route: 065
     Dates: start: 20170221
  79. FOLINIC ACID [Suspect]
     Active Substance: LEUCOVORIN
     Dosage: 636 UNK
     Dates: start: 20170302, end: 20170302
  80. FOLINIC ACID [Suspect]
     Active Substance: LEUCOVORIN
     Dosage: 636 UNK
     Dates: start: 20180322, end: 20180322
  81. OXALIPLATIN. [Suspect]
     Active Substance: OXALIPLATIN
     Dosage: 135 UNK
     Dates: start: 20170511, end: 20170511
  82. OXALIPLATIN. [Suspect]
     Active Substance: OXALIPLATIN
     Dosage: 135 UNK
     Dates: start: 20170427, end: 20170427
  83. FLUOROURACIL. [Suspect]
     Active Substance: FLUOROURACIL
     Dosage: 3816 UNK
     Dates: start: 20171114, end: 20171116
  84. FLUOROURACIL. [Suspect]
     Active Substance: FLUOROURACIL
     Dosage: 636 UNK
     Dates: start: 20170725, end: 20170725
  85. FLUOROURACIL. [Suspect]
     Active Substance: FLUOROURACIL
     Dosage: 3816 UNK
     Dates: start: 20170613, end: 20170615
  86. LAXANS AL [Concomitant]
     Dosage: UNK
     Route: 065
     Dates: start: 2007
  87. METOCLOPRAMID [METOCLOPRAMIDE HYDROCHLORIDE] [Concomitant]
     Dosage: UNK
     Route: 065
     Dates: start: 20180110
  88. MAGNESIUM [Concomitant]
     Active Substance: MAGNESIUM
     Dosage: UNK
     Route: 065
     Dates: start: 19980101
  89. FOLINIC ACID [Suspect]
     Active Substance: LEUCOVORIN
     Dosage: 636 MG, UNK
     Dates: start: 20170330, end: 20170330
  90. FOLINIC ACID [Suspect]
     Active Substance: LEUCOVORIN
     Dosage: 636 UNK
     Dates: start: 20170725, end: 20170725
  91. FOLINIC ACID [Suspect]
     Active Substance: LEUCOVORIN
     Dosage: 636 UNK
     Dates: start: 20180308, end: 20180308
  92. OXALIPLATIN. [Suspect]
     Active Substance: OXALIPLATIN
     Dosage: 135 MG, UNK
     Dates: start: 20170613, end: 20170613
  93. FLUOROURACIL. [Suspect]
     Active Substance: FLUOROURACIL
     Dosage: 3816 UNK
     Dates: start: 20180322, end: 20180324
  94. FLUOROURACIL. [Suspect]
     Active Substance: FLUOROURACIL
     Dosage: 636 UNK
     Dates: start: 20170302, end: 20170302
  95. FLUOROURACIL. [Suspect]
     Active Substance: FLUOROURACIL
     Dosage: 636 UNK
     Dates: start: 20171114, end: 20171114
  96. FLUOROURACIL. [Suspect]
     Active Substance: FLUOROURACIL
     Dosage: 636 UNK
     Dates: start: 20171017, end: 20171017
  97. FLUOROURACIL. [Suspect]
     Active Substance: FLUOROURACIL
     Dosage: 636 UNK
     Dates: start: 20180405, end: 20180405
  98. FLUOROURACIL. [Suspect]
     Active Substance: FLUOROURACIL
     Dosage: 636 UNK
     Dates: start: 20170711, end: 20170711
  99. FLUOROURACIL. [Suspect]
     Active Substance: FLUOROURACIL
     Dosage: 3816 UNK
     Dates: start: 20170627, end: 20170629
  100. FLUOROURACIL. [Suspect]
     Active Substance: FLUOROURACIL
     Dosage: 636 UNK
     Dates: start: 20170330, end: 20170330
  101. FLUOROURACIL. [Suspect]
     Active Substance: FLUOROURACIL
     Dosage: 3816 MG, UNK
     Dates: start: 20180208, end: 20180210
  102. FLUOROURACIL. [Suspect]
     Active Substance: FLUOROURACIL
     Dosage: 3816 UNK
     Dates: start: 20170711, end: 20170713
  103. FLUOROURACIL. [Suspect]
     Active Substance: FLUOROURACIL
     Dosage: 636 UNK
     Dates: start: 20180222, end: 20180222
  104. TRAMAL [Suspect]
     Active Substance: TRAMADOL
     Dosage: UNK UNK, UNK
     Route: 065
  105. NEUROTRAT B12 [Concomitant]
     Dosage: UNK
     Route: 065
     Dates: start: 20180125
  106. INNOHEP [Concomitant]
     Active Substance: TINZAPARIN SODIUM
     Dosage: UNK
     Route: 065
     Dates: start: 20170424
  107. LYRICA [Concomitant]
     Active Substance: PREGABALIN
     Dosage: UNK
     Route: 065
     Dates: start: 20180110

REACTIONS (1)
  - Hip fracture [Recovered/Resolved]

NARRATIVE: CASE EVENT DATE: 20180506
